FAERS Safety Report 6538982-4 (Version None)
Quarter: 2010Q1

REPORT INFORMATION
  Report Type: 
  Country: None (occurrence: None)
  Receive Date: 20100115
  Receipt Date: 20100107
  Transmission Date: 20100710
  Serious: Yes (Death, Life-Threatening, Hospitalization)
  Sender: FDA-Public Use
  Company Number: DE-BRISTOL-MYERS SQUIBB COMPANY-14931018

PATIENT
  Age: 40 Year
  Sex: Female

DRUGS (12)
  1. ERBITUX [Suspect]
     Indication: TONGUE NEOPLASM MALIGNANT STAGE UNSPECIFIED
     Dosage: 03DEC09-17DEC09 (14 DAYS);30DEC09 (RECENT INF)-ONG
     Route: 042
     Dates: start: 20091203
  2. CARBOPLATIN [Suspect]
     Indication: TONGUE NEOPLASM MALIGNANT STAGE UNSPECIFIED
     Dosage: 1DF-AUC 5, GIVEN ALSO ON 03MAY09
     Dates: end: 20091230
  3. METHOTREXATE [Concomitant]
     Indication: TONGUE NEOPLASM MALIGNANT STAGE UNSPECIFIED
     Dates: start: 20091111, end: 20091124
  4. TAXOL [Concomitant]
     Indication: TONGUE NEOPLASM MALIGNANT STAGE UNSPECIFIED
     Dates: start: 20090503
  5. DEXAMETHASONE TAB [Concomitant]
  6. OMEPRAZOLE [Concomitant]
  7. NEUROCIL [Concomitant]
  8. DURAGESIC-100 [Concomitant]
  9. NOVALGIN [Concomitant]
  10. AMITRIPTYLINE HYDROCHLORIDE [Concomitant]
  11. DIAZEPAM [Concomitant]
  12. FERRO SANOL [Concomitant]

REACTIONS (1)
  - MOUTH HAEMORRHAGE [None]
